FAERS Safety Report 14309045 (Version 1)
Quarter: 2017Q4

REPORT INFORMATION
  Report Type: Spontaneous
  Country: US (occurrence: US)
  Receive Date: 20171220
  Receipt Date: 20171220
  Transmission Date: 20180321
  Serious: Yes (Other)
  Sender: FDA-Public Use
  Company Number: US-NOVOPROD-577371

PATIENT
  Sex: Female

DRUGS (1)
  1. LEVEMIR [Suspect]
     Active Substance: INSULIN DETEMIR
     Indication: PRODUCT USED FOR UNKNOWN INDICATION
     Route: 058

REACTIONS (6)
  - Monoplegia [Unknown]
  - Nephropathy [Unknown]
  - Retinal disorder [Unknown]
  - Injury associated with device [Unknown]
  - Fall [Unknown]
  - Eye disorder [Unknown]

NARRATIVE: CASE EVENT DATE: 20171211
